APPROVED DRUG PRODUCT: TETRACYCLINE HYDROCHLORIDE
Active Ingredient: TETRACYCLINE HYDROCHLORIDE
Strength: 250MG
Dosage Form/Route: CAPSULE;ORAL
Application: A062686 | Product #001
Applicant: PRIVATE FORMULATIONS INC
Approved: Jul 24, 1986 | RLD: No | RS: No | Type: DISCN